FAERS Safety Report 7085629-7 (Version None)
Quarter: 2010Q4

REPORT INFORMATION
  Report Type: 
  Country: None (occurrence: None)
  Receive Date: 20101105
  Receipt Date: 20101029
  Transmission Date: 20110411
  Serious: Yes (Other)
  Sender: FDA-Public Use
  Company Number: CA-ASTRAZENECA-2010SE51425

PATIENT
  Sex: Male

DRUGS (3)
  1. CRESTOR [Suspect]
     Route: 048
     Dates: start: 20080101
  2. CRESTOR [Suspect]
     Route: 048
     Dates: start: 20090101
  3. VITAMIN D [Concomitant]
     Route: 048

REACTIONS (3)
  - DYSGEUSIA [None]
  - HEPATIC ENZYME INCREASED [None]
  - PROSTATE CANCER [None]
